FAERS Safety Report 8550711-1 (Version None)
Quarter: 2012Q3

REPORT INFORMATION
  Report Type: 
  Country: None (occurrence: None)
  Receive Date: 20120730
  Receipt Date: 20120724
  Transmission Date: 20120928
  Serious: Yes (Hospitalization)
  Sender: FDA-Public Use
  Company Number: FR-GLAXOSMITHKLINE-B0705710A

PATIENT
  Sex: Female

DRUGS (9)
  1. LASIX [Concomitant]
     Route: 065
  2. CHLORAMINOPHENE [Concomitant]
     Indication: PRODUCT USED FOR UNKNOWN INDICATION
     Dosage: 12MG PER DAY
     Route: 048
     Dates: start: 20101220, end: 20101225
  3. VALACYCLOVIR HYDROCHLORIDE [Suspect]
     Indication: PRODUCT USED FOR UNKNOWN INDICATION
     Dosage: 500MG TWICE PER DAY
     Route: 048
     Dates: start: 20101220, end: 20110124
  4. ALLOPURINOL [Suspect]
     Indication: PRODUCT USED FOR UNKNOWN INDICATION
     Dosage: 300MG PER DAY
     Route: 048
     Dates: start: 20101220, end: 20110124
  5. CORDARONE [Concomitant]
     Route: 065
  6. RAMIPRIL [Concomitant]
     Route: 065
  7. BACTRIM [Suspect]
     Indication: PRODUCT USED FOR UNKNOWN INDICATION
     Route: 048
     Dates: start: 20101220, end: 20110124
  8. PREDNISONE TAB [Concomitant]
     Indication: PRODUCT USED FOR UNKNOWN INDICATION
     Dosage: 60MG PER DAY
     Route: 048
     Dates: start: 20101220, end: 20101225
  9. NEXIUM [Suspect]
     Indication: PRODUCT USED FOR UNKNOWN INDICATION
     Route: 048
     Dates: start: 20101220, end: 20110124

REACTIONS (6)
  - LYMPHADENOPATHY [None]
  - PYREXIA [None]
  - DERMATITIS EXFOLIATIVE [None]
  - DRUG RASH WITH EOSINOPHILIA AND SYSTEMIC SYMPTOMS [None]
  - RENAL IMPAIRMENT [None]
  - EOSINOPHILIA [None]
